FAERS Safety Report 16860392 (Version 3)
Quarter: 2020Q1

REPORT INFORMATION
  Report Type: Report from Study
  Country: US (occurrence: US)
  Receive Date: 20190927
  Receipt Date: 20200218
  Transmission Date: 20200409
  Serious: Yes (Other)
  Sender: FDA-Public Use
  Company Number: PHEH2019US039757

PATIENT
  Age: 56 Year
  Sex: Male
  Weight: 131.54 kg

DRUGS (3)
  1. TALTZ [Concomitant]
     Active Substance: IXEKIZUMAB
     Dosage: 80 MG, Q2W
     Route: 065
     Dates: start: 20190619
  2. TALTZ [Concomitant]
     Active Substance: IXEKIZUMAB
     Indication: PSORIASIS
     Dosage: 80 MG, Q2W
     Route: 065
     Dates: start: 20171025
  3. COSENTYX [Suspect]
     Active Substance: SECUKINUMAB
     Indication: PSORIASIS
     Dosage: 300 MG, QMO
     Route: 065
     Dates: start: 20180723, end: 20190825

REACTIONS (2)
  - Cellulitis [Unknown]
  - Crohn^s disease [Not Recovered/Not Resolved]

NARRATIVE: CASE EVENT DATE: 2019
